FAERS Safety Report 8169505-4 (Version None)
Quarter: 2012Q1

REPORT INFORMATION
  Report Type: 
  Country: None (occurrence: None)
  Receive Date: 20120104
  Receipt Date: 20111201
  Transmission Date: 20120608
  Serious: No
  Sender: FDA-Public Use
  Company Number: 2011HGS-002889

PATIENT
  Age: 44 Year
  Sex: Female
  Weight: 75.7507 kg

DRUGS (10)
  1. BENLYSTA [Suspect]
     Indication: SYSTEMIC LUPUS ERYTHEMATOSUS
     Dosage: Q 14 DAYS X 3, THEN Q 28 DAYS THEREAFTER, INTRAVENOUS DRIP
     Route: 041
     Dates: start: 20110922
  2. PLAQUENIL (HYDROXYCHLOROQUINE SULFATE) (HYDROXYCHLOROQUINE SULFATE) [Concomitant]
  3. DYAZIDE (DYAZIDE) (HYDROCHLOROTHIAZIDE, TRIAMTERENE) [Concomitant]
  4. TOPOMAX (TOPIRAMATE) (TOPIRAMATE) [Concomitant]
  5. MOTRIN [Concomitant]
  6. RANITIDINE [Concomitant]
  7. WELLBUTRIN (BUPROPION HYDROCHLORIDE) (BUPROPION HYDROCHLORIDE) [Concomitant]
  8. MAGNESIUM (MAGNESIUM) (MAGNESIUM) [Concomitant]
  9. CLARITIN [Concomitant]
  10. ADVAIR INHALER (SERETIDE MITE) (FLUTICASONE PROPIONATE, SALMETEROL XIN [Concomitant]

REACTIONS (5)
  - FATIGUE [None]
  - HEADACHE [None]
  - PAIN [None]
  - NAUSEA [None]
  - ALOPECIA [None]
